FAERS Safety Report 23948561 (Version 2)
Quarter: 2025Q2

REPORT INFORMATION
  Report Type: Spontaneous
  Country: FR (occurrence: FR)
  Receive Date: 20240607
  Receipt Date: 20250630
  Transmission Date: 20250717
  Serious: Yes (Death, Hospitalization, Other)
  Sender: AUROBINDO
  Company Number: FR-ELI_LILLY_AND_COMPANY-FR202405013871

PATIENT
  Age: 77 Year

DRUGS (3)
  1. CARBOPLATIN [Suspect]
     Active Substance: CARBOPLATIN
     Indication: Transitional cell carcinoma
     Route: 065
  2. GEMCITABINE [Suspect]
     Active Substance: GEMCITABINE
     Indication: Transitional cell carcinoma
     Route: 065
  3. VINFLUNINE [Concomitant]
     Active Substance: VINFLUNINE
     Indication: Chemotherapy
     Route: 065

REACTIONS (7)
  - Cardiac failure [Fatal]
  - Malignant neoplasm progression [Unknown]
  - Seizure [Unknown]
  - Hypercalcaemia [Unknown]
  - Thrombocytopenia [Unknown]
  - Dilated cardiomyopathy [Unknown]
  - Drug ineffective [Unknown]
